FAERS Safety Report 7323427-7 (Version None)
Quarter: 2011Q1

REPORT INFORMATION
  Report Type: 
  Country: None (occurrence: None)
  Receive Date: 20110201
  Receipt Date: 20101012
  Transmission Date: 20110831
  Serious: Yes (Other)
  Sender: FDA-Public Use
  Company Number: AMAG201000376

PATIENT
  Age: 79 Year
  Sex: Female
  Weight: 76.6 kg

DRUGS (11)
  1. PROTONIX [Concomitant]
  2. LIPITOR [Concomitant]
  3. ASPIRIN [Concomitant]
  4. FERAHEME [Suspect]
     Indication: IRON DEFICIENCY ANAEMIA
     Dosage: 510 MG, SINGLE, INTRAVENOUS
     Route: 042
     Dates: start: 20101012, end: 20101012
  5. AMBIEN [Concomitant]
  6. VERAPAMIL SR (VERAPAMIL HYDROCHLORIDE) [Concomitant]
  7. OXYCODONE (OXYCODONE) [Concomitant]
  8. SENOKOT [Concomitant]
  9. MICARDIS HCT [Concomitant]
  10. DOXAZOSIN (DOXAZOSIN MESILATE) [Concomitant]
  11. LASIX [Concomitant]

REACTIONS (2)
  - BLOOD PRESSURE INCREASED [None]
  - DIZZINESS [None]
